FAERS Safety Report 15804819 (Version 2)
Quarter: 2019Q1

REPORT INFORMATION
  Report Type: Spontaneous
  Country: GB (occurrence: GB)
  Receive Date: 20190109
  Receipt Date: 20190228
  Transmission Date: 20190417
  Serious: Yes (Other)
  Sender: FDA-Public Use
  Company Number: GB-TEVA-2019-GB-995558

PATIENT
  Age: 66 Year
  Sex: Female
  Weight: 57 kg

DRUGS (2)
  1. CO-AMOXICLAV [Suspect]
     Active Substance: AMOXICILLIN\CLAVULANATE POTASSIUM
     Indication: PHARYNGITIS
     Dosage: 3 DOSAGE FORMS DAILY; 500/125
     Route: 048
     Dates: start: 20181128, end: 20181201
  2. CO-AMOXICLAV [Suspect]
     Active Substance: AMOXICILLIN\CLAVULANATE POTASSIUM
     Route: 048
     Dates: start: 20181128, end: 20181201

REACTIONS (13)
  - Abdominal discomfort [Recovering/Resolving]
  - Anal candidiasis [Recovering/Resolving]
  - Abdominal pain upper [Recovering/Resolving]
  - Pruritus [Recovering/Resolving]
  - Inflammation [Recovering/Resolving]
  - Vomiting [Recovering/Resolving]
  - Hypersensitivity [Recovering/Resolving]
  - Urticaria [Recovering/Resolving]
  - Drug ineffective [Unknown]
  - Oral candidiasis [Recovering/Resolving]
  - Faecal volume increased [Unknown]
  - Constipation [Recovering/Resolving]
  - Vulvovaginal candidiasis [Recovering/Resolving]

NARRATIVE: CASE EVENT DATE: 20181128
